FAERS Safety Report 6375194-1 (Version None)
Quarter: 2009Q3

REPORT INFORMATION
  Report Type: 
  Country: None (occurrence: None)
  Receive Date: 20090922
  Receipt Date: 20090922
  Transmission Date: 20100115
  Serious: Yes (Other)
  Sender: FDA-Public Use
  Company Number: None

PATIENT
  Age: 13 Year
  Sex: Male
  Weight: 73.9363 kg

DRUGS (1)
  1. CIPROFLOXACIN 750MG TEVA [Suspect]
     Indication: PNEUMONIA
     Dosage: 1 TABLET 12 HOUR UNK
     Dates: start: 20090827, end: 20090904

REACTIONS (1)
  - SKIN EXFOLIATION [None]
